FAERS Safety Report 7227945-1 (Version None)
Quarter: 2011Q1

REPORT INFORMATION
  Report Type: 
  Country: None (occurrence: None)
  Receive Date: 20110114
  Receipt Date: 20110113
  Transmission Date: 20110831
  Serious: Yes (Death, Other)
  Sender: FDA-Public Use
  Company Number: US-ASTRAZENECA-2008UW24337

PATIENT
  Age: 586 Month
  Sex: Male
  Weight: 90.7 kg

DRUGS (15)
  1. BUPROPION [Concomitant]
  2. NIACIN [Concomitant]
     Dates: start: 20060125
  3. LITHIUM CARBONATE [Concomitant]
     Dosage: 300 MG TO 1200 MG
     Dates: start: 20040724
  4. THORAZINE [Concomitant]
     Dates: start: 20070101
  5. LEVETHYROXINE [Concomitant]
     Dates: start: 20060125
  6. TRAZODONE HCL [Concomitant]
     Dates: start: 20040101
  7. FASTING [Concomitant]
  8. ZYPREXA [Concomitant]
     Dosage: 15 MG, 20 MG
     Dates: start: 20030501, end: 20050401
  9. EFFEXOR XR [Concomitant]
     Dates: start: 20040724
  10. CYMBALTA [Concomitant]
     Dates: start: 20060125
  11. STRATTERA [Concomitant]
     Dosage: 40 MG 2 TAB QAM
     Dates: start: 20060125
  12. ATENOLOL [Concomitant]
     Indication: BLOOD PRESSURE
     Dosage: 25 MG TO 50 MG
     Dates: start: 20060125
  13. ABILIFY [Concomitant]
     Dates: start: 20050614
  14. SEROQUEL [Suspect]
     Indication: BIPOLAR DISORDER
     Dosage: 100 MG TO 300 MG
     Route: 048
     Dates: start: 20030501, end: 20060901
  15. SEROQUEL [Suspect]
     Dosage: 100 MG 2 TAB QHS
     Route: 048
     Dates: start: 20040528

REACTIONS (4)
  - LIGAMENT RUPTURE [None]
  - TOXICITY TO VARIOUS AGENTS [None]
  - DIABETES MELLITUS [None]
  - ERECTILE DYSFUNCTION [None]
